FAERS Safety Report 6402985-0 (Version None)
Quarter: 2009Q4

REPORT INFORMATION
  Report Type: 
  Country: None (occurrence: None)
  Receive Date: 20091016
  Receipt Date: 20091002
  Transmission Date: 20100525
  Serious: Yes (Hospitalization)
  Sender: FDA-Public Use
  Company Number: FR-BAYER-200934716GPV

PATIENT
  Age: 32 Year
  Sex: Female

DRUGS (1)
  1. ADALAT [Suspect]
     Indication: THREATENED LABOUR
     Dosage: UNIT DOSE: 1 DF
     Route: 048
     Dates: start: 20090916, end: 20090916

REACTIONS (8)
  - ADVERSE EVENT [None]
  - ANAPHYLACTIC REACTION [None]
  - DRUG EXPOSURE DURING PREGNANCY [None]
  - ERYTHEMA [None]
  - HAEMOGLOBIN DECREASED [None]
  - HYPOTENSION [None]
  - SINUS TACHYCARDIA [None]
  - TACHYCARDIA [None]
